FAERS Safety Report 16019224 (Version 3)
Quarter: 2019Q2

REPORT INFORMATION
  Report Type: Report from Study
  Country: US (occurrence: US)
  Receive Date: 20190228
  Receipt Date: 20190523
  Transmission Date: 20190711
  Serious: Yes (Hospitalization, Other)
  Sender: FDA-Public Use
  Company Number: US-MALLINCKRODT-T201806835

PATIENT
  Age: 40 Year
  Sex: Female
  Weight: 82 kg

DRUGS (7)
  1. REPOSITORY CORTICOTROPIN INJECTION [Suspect]
     Active Substance: CORTICOTROPIN
     Dosage: 80 UNITS / 1 ML 2 TIMES PER WEEK (TUESDAY/SATURDAY)
     Route: 030
  2. REPOSITORY CORTICOTROPIN INJECTION [Suspect]
     Active Substance: CORTICOTROPIN
     Dosage: 80 UNITS / 1 ML 2 TIMES PER WEEK (TUESDAY/SATURDAY)
     Route: 030
  3. REPOSITORY CORTICOTROPIN INJECTION [Suspect]
     Active Substance: CORTICOTROPIN
     Indication: ANKYLOSING SPONDYLITIS
     Dosage: 80 UNITS / 1 ML 2 TIMES PER WEEK
     Route: 030
     Dates: start: 20181206, end: 2018
  4. REPOSITORY CORTICOTROPIN INJECTION [Suspect]
     Active Substance: CORTICOTROPIN
     Dosage: 40 UNITS
     Route: 065
     Dates: start: 2018, end: 20181227
  5. REPOSITORY CORTICOTROPIN INJECTION [Suspect]
     Active Substance: CORTICOTROPIN
     Dosage: 80 UNITS / 1 ML, 2 TIMES PER WEEK, MON/THURS
     Route: 030
     Dates: start: 2018, end: 2018
  6. SIMPONI ARIA [Suspect]
     Active Substance: GOLIMUMAB
     Indication: PRODUCT USED FOR UNKNOWN INDICATION
     Dosage: ONCE A MONTH
     Route: 065
     Dates: start: 20190130
  7. CIMZIA [Concomitant]
     Active Substance: CERTOLIZUMAB PEGOL
     Indication: PRODUCT USED FOR UNKNOWN INDICATION
     Dosage: UNK
     Route: 065

REACTIONS (18)
  - Vision blurred [Unknown]
  - Cushingoid [Unknown]
  - Tachycardia [Recovering/Resolving]
  - Photophobia [Unknown]
  - Dizziness [Recovering/Resolving]
  - Insomnia [Unknown]
  - Fluid retention [Unknown]
  - Therapy cessation [Unknown]
  - Drug ineffective [Unknown]
  - Gait disturbance [Unknown]
  - Injection site bruising [Unknown]
  - Migraine [Unknown]
  - Ankylosing spondylitis [Not Recovered/Not Resolved]
  - Product dose omission [Unknown]
  - Pericardial effusion [Unknown]
  - Intraocular pressure increased [Recovering/Resolving]
  - Hypertension [Recovering/Resolving]
  - Weight increased [Unknown]

NARRATIVE: CASE EVENT DATE: 2018
